FAERS Safety Report 10641608 (Version 2)
Quarter: 2014Q4

REPORT INFORMATION
  Report Type: Spontaneous
  Country: DE (occurrence: DE)
  Receive Date: 20141209
  Receipt Date: 20141215
  Transmission Date: 20150529
  Serious: Yes (Other)
  Sender: FDA-Public Use
  Company Number: DE-JNJFOC-20141201297

PATIENT
  Age: 53 Year
  Sex: Male

DRUGS (5)
  1. TREVILOR RETARD [Suspect]
     Active Substance: VENLAFAXINE HYDROCHLORIDE
     Indication: PRODUCT USED FOR UNKNOWN INDICATION
     Dosage: 3 TABLETS IN 3 DAYS (37.5 MG)
     Route: 048
  2. RISPERDAL [Suspect]
     Active Substance: RISPERIDONE
     Indication: PRODUCT USED FOR UNKNOWN INDICATION
     Dosage: 3 TABLETS IN 3 DAYS (0.5MG)
     Route: 048
  3. ERGENYL [Suspect]
     Active Substance: VALPROIC ACID
     Indication: PRODUCT USED FOR UNKNOWN INDICATION
     Dosage: 6 TABLETS IN 3 DAYS (300 MG)
     Route: 048
  4. IBUPROFEN. [Suspect]
     Active Substance: IBUPROFEN
     Indication: PRODUCT USED FOR UNKNOWN INDICATION
     Dosage: 6 TABLETS IN 3 DAYS (300 MG)
     Route: 048
  5. MIRTAZAPIN [Suspect]
     Active Substance: MIRTAZAPINE
     Indication: PRODUCT USED FOR UNKNOWN INDICATION
     Dosage: 3 TABLETS IN 3 DAYS (30 MG)
     Route: 048

REACTIONS (5)
  - Intentional overdose [Unknown]
  - Asthenia [Unknown]
  - Syncope [Unknown]
  - Suicide attempt [Unknown]
  - Fatigue [Unknown]

NARRATIVE: CASE EVENT DATE: 20141201
